FAERS Safety Report 13273818 (Version 4)
Quarter: 2018Q1

REPORT INFORMATION
  Report Type: Spontaneous
  Country: CH (occurrence: CH)
  Receive Date: 20170227
  Receipt Date: 20180308
  Transmission Date: 20180508
  Serious: Yes (Hospitalization, Disabling, Other)
  Sender: FDA-Public Use
  Company Number: CH-GILEAD-2017-0258929

PATIENT
  Age: 54 Year
  Sex: Male
  Weight: 90 kg

DRUGS (2)
  1. GENVOYA [Suspect]
     Active Substance: COBICISTAT\ELVITEGRAVIR\EMTRICITABINE\TENOFOVIR ALAFENAMIDE FUMARATE
     Indication: HIV INFECTION
     Dosage: 1 DF, QD
     Route: 048
     Dates: end: 20170125
  2. SIMVASTATIN. [Interacting]
     Active Substance: SIMVASTATIN
     Indication: HIV INFECTION
     Dosage: 1 DF, QD
     Route: 048
     Dates: end: 20170125

REACTIONS (5)
  - Drug interaction [Recovered/Resolved]
  - Contraindicated product administered [Recovered/Resolved]
  - Renal failure [Recovering/Resolving]
  - Acute kidney injury [Recovering/Resolving]
  - Rhabdomyolysis [Recovering/Resolving]

NARRATIVE: CASE EVENT DATE: 20170125
